FAERS Safety Report 10366245 (Version 1)
Quarter: 2014Q3

REPORT INFORMATION
  Report Type: Spontaneous
  Country: TN (occurrence: TN)
  Receive Date: 20140806
  Receipt Date: 20140806
  Transmission Date: 20150326
  Serious: Yes (Other)
  Sender: FDA-Public Use
  Company Number: TN-WATSON-2014-16636

PATIENT
  Age: 30 Year
  Sex: Male

DRUGS (3)
  1. PREDNISONE (UNKNOWN) [Suspect]
     Active Substance: PREDNISONE
     Indication: COLITIS ULCERATIVE
     Dosage: 1 MG/KG, DAILY, THREE TIMES
     Route: 065
     Dates: start: 2011
  2. AZATHIOPRINE (UNKNOWN) [Suspect]
     Active Substance: AZATHIOPRINE
     Indication: COLITIS ULCERATIVE
     Dosage: 2.5 MG/KG, DAILY
     Route: 065
  3. INFLIXIMAB [Suspect]
     Active Substance: INFLIXIMAB
     Indication: COLITIS ULCERATIVE
     Dosage: INDUCTION REGIMEN OF 5 MG/KG WEEKS 0, 2 AND 6
     Route: 065

REACTIONS (3)
  - Kaposi^s sarcoma [Unknown]
  - Treatment failure [Unknown]
  - Drug ineffective [Unknown]
